FAERS Safety Report 25477511 (Version 1)
Quarter: 2025Q2

REPORT INFORMATION
  Report Type: Spontaneous
  Country: US (occurrence: US)
  Receive Date: 20250625
  Receipt Date: 20250625
  Transmission Date: 20250716
  Serious: Yes (Other)
  Sender: COOPERSURGICAL
  Company Number: US-COOPERSURGICAL, INC.-2025CPS005066

PATIENT
  Age: 29 Year
  Sex: Female
  Weight: 62.132 kg

DRUGS (2)
  1. PARAGARD T 380A [Suspect]
     Active Substance: COPPER
     Indication: Contraception
     Route: 015
     Dates: start: 20080101
  2. WARFARIN [Concomitant]
     Active Substance: WARFARIN
     Dates: start: 200811

REACTIONS (17)
  - Abortion spontaneous [Recovered/Resolved]
  - Ectopic pregnancy [Recovered/Resolved]
  - Surgery [Recovered/Resolved]
  - Oophorectomy [Recovered/Resolved]
  - Salpingectomy [Recovered/Resolved]
  - Reproductive complication associated with device [Not Recovered/Not Resolved]
  - Pregnancy with contraceptive device [Recovered/Resolved]
  - Drug ineffective [Unknown]
  - Embedded device [Unknown]
  - Device breakage [Unknown]
  - Foreign body in urogenital tract [Unknown]
  - Complication of device removal [Unknown]
  - Device issue [Unknown]
  - Emotional distress [Not Recovered/Not Resolved]
  - Emotional disorder [Unknown]
  - Device dislocation [Unknown]
  - Pelvic pain [Not Recovered/Not Resolved]

NARRATIVE: CASE EVENT DATE: 20150812
